FAERS Safety Report 5842663-X (Version None)
Quarter: 2008Q3

REPORT INFORMATION
  Report Type: 
  Country: None (occurrence: None)
  Receive Date: 20080808
  Receipt Date: 20080725
  Transmission Date: 20090109
  Serious: Yes (Other)
  Sender: FDA-Public Use
  Company Number: A-US2006-12910

PATIENT
  Age: 51 Year
  Sex: Male

DRUGS (7)
  1. TRACLEER [Suspect]
     Indication: PULMONARY HYPERTENSION
     Dosage: ORAL
     Route: 048
     Dates: start: 20060301
  2. ETHAMBUTOL HYDROCHLORIDE [Concomitant]
  3. AZITHROMYCIN [Concomitant]
  4. MONTELUKAST SODIUM [Concomitant]
  5. DILTIAZEM [Concomitant]
  6. ADVAIR DISKUS 100/50 [Concomitant]
  7. POTASSIUM (POTASSIUM) [Concomitant]

REACTIONS (5)
  - BONE MARROW TOXICITY [None]
  - EOSINOPHIL COUNT INCREASED [None]
  - LEUKOPENIA [None]
  - LYMPHADENOPATHY [None]
  - THROMBOCYTOPENIA [None]
